FAERS Safety Report 11663471 (Version 2)
Quarter: 2015Q4

REPORT INFORMATION
  Report Type: Spontaneous
  Country: US (occurrence: US)
  Receive Date: 20151027
  Receipt Date: 20151127
  Transmission Date: 20160304
  Serious: No
  Sender: FDA-Public Use
  Company Number: US-PFIZER INC-2015351303

PATIENT
  Age: 71 Year
  Sex: Female
  Weight: 75 kg

DRUGS (3)
  1. LYRICA [Suspect]
     Active Substance: PREGABALIN
     Dosage: 150 MG (EITHER TWO 75 MG CAPSULES OR THREE 50 MG CAPSULES), 2X/DAY
     Route: 048
     Dates: start: 201504
  2. LYRICA [Suspect]
     Active Substance: PREGABALIN
     Dosage: 175 MG, UNK, ONE OF THE 75 MG CAPSULES AND TWO OF THE 50 MG CAPSULES
     Route: 048
  3. LYRICA [Suspect]
     Active Substance: PREGABALIN
     Indication: MUSCULOSKELETAL CHEST PAIN
     Dosage: 150 MG (EITHER TWO 75 MG CAPSULES OR THREE 50 MG CAPSULES), 2X/DAY
     Route: 048
     Dates: start: 201504

REACTIONS (2)
  - Intentional product misuse [Unknown]
  - Drug ineffective for unapproved indication [Unknown]

NARRATIVE: CASE EVENT DATE: 201504
